APPROVED DRUG PRODUCT: FENTANYL CITRATE
Active Ingredient: FENTANYL CITRATE
Strength: EQ 1.2MG BASE
Dosage Form/Route: TROCHE/LOZENGE;TRANSMUCOSAL
Application: A078907 | Product #005
Applicant: SPECGX LLC
Approved: Oct 30, 2009 | RLD: No | RS: No | Type: DISCN